FAERS Safety Report 9563726 (Version 1)
Quarter: 2013Q1

REPORT INFORMATION
  Report Type: Spontaneous
  Country: US (occurrence: None)
  Receive Date: 20121218
  Receipt Date: 20121218
  Transmission Date: 20140127
  Serious: Yes (Other)
  Sender: FDA-Public Use
  Company Number: PHEH2011US011184

PATIENT
  Age: 75 Year
  Sex: Female

DRUGS (2)
  1. ZOMETA (ZOLEDRONATE) UNKNOWN [Suspect]
     Indication: PLASMA CELL MYELOMA
     Route: 048
     Dates: start: 20110809
  2. REVLIMID (LENALIDOMIDE) [Suspect]
     Route: 048
     Dates: start: 20110809

REACTIONS (3)
  - Renal failure acute [None]
  - Fatigue [None]
  - Hypovolaemia [None]
